FAERS Safety Report 6493730-1 (Version None)
Quarter: 2009Q4

REPORT INFORMATION
  Report Type: 
  Country: None (occurrence: None)
  Receive Date: 20091214
  Receipt Date: 20091208
  Transmission Date: 20100525
  Serious: No
  Sender: FDA-Public Use
  Company Number: US-B.I. PHARMACEUTICALS,INC./RIDGEFIELD-2009-BP-14190BP

PATIENT
  Sex: Female

DRUGS (7)
  1. SPIRIVA [Suspect]
     Indication: CHRONIC OBSTRUCTIVE PULMONARY DISEASE
     Dosage: 18 MCG
     Route: 055
     Dates: start: 20091202
  2. SPIRIVA [Suspect]
     Indication: EMPHYSEMA
  3. PREDNISONE [Suspect]
     Indication: CHRONIC OBSTRUCTIVE PULMONARY DISEASE
     Dates: start: 20091129, end: 20091206
  4. PREDNISONE [Suspect]
     Indication: EMPHYSEMA
  5. CIPRO [Suspect]
     Indication: BRONCHITIS
     Dosage: 1000 MG
     Route: 048
     Dates: start: 20091129, end: 20091206
  6. ALBUTEROL [Suspect]
     Indication: CHRONIC OBSTRUCTIVE PULMONARY DISEASE
     Dates: start: 20091130
  7. ALBUTEROL [Suspect]
     Indication: EMPHYSEMA

REACTIONS (3)
  - DYSGEUSIA [None]
  - GLOSSODYNIA [None]
  - TONGUE DISCOLOURATION [None]
